FAERS Safety Report 12614096 (Version 1)
Quarter: 2016Q3

REPORT INFORMATION
  Report Type: Spontaneous
  Country: TR (occurrence: TR)
  Receive Date: 20160802
  Receipt Date: 20160802
  Transmission Date: 20161109
  Serious: Yes (Other)
  Sender: FDA-Public Use
  Company Number: TR-ACTAVIS-2016-16982

PATIENT
  Age: 55 Year
  Sex: Female

DRUGS (1)
  1. MESALAZINE (UNKNOWN) [Suspect]
     Active Substance: MESALAMINE
     Indication: COLITIS ULCERATIVE
     Dosage: 2000 MG, DAILY
     Route: 065

REACTIONS (1)
  - Myopathy [Unknown]
